FAERS Safety Report 21950395 (Version 1)
Quarter: 2023Q1

REPORT INFORMATION
  Report Type: Spontaneous
  Country: US (occurrence: US)
  Receive Date: 20230203
  Receipt Date: 20230203
  Transmission Date: 20230417
  Serious: No
  Sender: FDA-Public Use
  Company Number: US-ORPHANEU-2019008115

PATIENT

DRUGS (3)
  1. CYSTADANE [Suspect]
     Active Substance: BETAINE
     Indication: Homocystinuria
     Dosage: ONE AND HALF SCOOPS THREE TIMES DAILY
     Dates: start: 20171129
  2. CYSTADANE [Suspect]
     Active Substance: BETAINE
     Dosage: 155 MG/KG/DAY
  3. HCU COOLER15 [Concomitant]
     Indication: Homocystinuria
     Dosage: UNK

REACTIONS (5)
  - Gastroenteritis viral [Recovered/Resolved]
  - Vomiting [Recovered/Resolved]
  - Diarrhoea [Recovered/Resolved]
  - Product dose omission issue [Unknown]
  - Inappropriate schedule of product administration [Unknown]
